FAERS Safety Report 6081624-5 (Version None)
Quarter: 2009Q1

REPORT INFORMATION
  Report Type: 
  Country: None (occurrence: None)
  Receive Date: 20090213
  Receipt Date: 20090130
  Transmission Date: 20090719
  Serious: Yes (Other)
  Sender: FDA-Public Use
  Company Number: DSM-2009-00072

PATIENT
  Sex: Female
  Weight: 59 kg

DRUGS (4)
  1. OLMETEC PLUS (HYDROCHLOROTHIAZIDE, OLMESARTAN MEDOXOMIL) (TABLET) (HYD [Suspect]
     Indication: HYPERTENSION
     Dosage: 10/12.5MG (1 IN 1 D), ORAL; 20/12.5MG (1 IN 1 D), ORAL
     Route: 048
     Dates: start: 20070825, end: 20070925
  2. OLMETEC PLUS (HYDROCHLOROTHIAZIDE, OLMESARTAN MEDOXOMIL) (TABLET) (HYD [Suspect]
     Indication: HYPERTENSION
     Dosage: 10/12.5MG (1 IN 1 D), ORAL; 20/12.5MG (1 IN 1 D), ORAL
     Route: 048
     Dates: start: 20070926, end: 20071013
  3. L-THYROXINE 75 (LEVOTHYROXINE) (75 MICROGRAM, TABLET) (LEVOTHYROXINE) [Concomitant]
  4. LIPITOR [Concomitant]

REACTIONS (6)
  - BRADYCARDIA [None]
  - CHEST PAIN [None]
  - COUGH [None]
  - DYSPNOEA [None]
  - MALAISE [None]
  - VENTRICULAR EXTRASYSTOLES [None]
